FAERS Safety Report 11943225 (Version 3)
Quarter: 2017Q3

REPORT INFORMATION
  Report Type: Spontaneous
  Country: US (occurrence: US)
  Receive Date: 20160125
  Receipt Date: 20170912
  Transmission Date: 20171127
  Serious: Yes (Hospitalization)
  Sender: FDA-Public Use
  Company Number: US-UNITED THERAPEUTICS-UNT-2015-010889

PATIENT
  Age: 57 Year
  Sex: Female
  Weight: 87.98 kg

DRUGS (5)
  1. OPSUMIT [Concomitant]
     Active Substance: MACITENTAN
     Indication: PRODUCT USED FOR UNKNOWN INDICATION
  2. REMODULIN [Suspect]
     Active Substance: TREPROSTINIL
     Dosage: 0.026 ?G/KG/MIN, CONTINUING
     Route: 041
  3. REMODULIN [Suspect]
     Active Substance: TREPROSTINIL
     Dosage: 0.101 ?G/KG, CONTINUING
     Route: 041
  4. REMODULIN [Suspect]
     Active Substance: TREPROSTINIL
     Indication: PULMONARY ARTERIAL HYPERTENSION
     Dosage: 0.020  ?G/KG/MIN, CONTINUING
     Route: 041
     Dates: start: 20150805
  5. REMODULIN [Suspect]
     Active Substance: TREPROSTINIL
     Dosage: 0.023 ?G/KG/MIN,CONTINUING
     Route: 041

REACTIONS (15)
  - Injection site discharge [Not Recovered/Not Resolved]
  - Dermatitis contact [Unknown]
  - Palpitations [Unknown]
  - Fatigue [Recovering/Resolving]
  - Headache [Unknown]
  - Injection site pain [Unknown]
  - Nausea [Unknown]
  - Injection site erythema [Unknown]
  - Vomiting [Unknown]
  - Ovarian cancer [Unknown]
  - Pulmonary hypertension [Unknown]
  - Malaise [Unknown]
  - Diarrhoea [Unknown]
  - Pain [Recovered/Resolved]
  - Pain in extremity [Recovered/Resolved]

NARRATIVE: CASE EVENT DATE: 2015
